FAERS Safety Report 25590967 (Version 2)
Quarter: 2025Q4

REPORT INFORMATION
  Report Type: Spontaneous
  Country: US (occurrence: US)
  Receive Date: 20250722
  Receipt Date: 20251017
  Transmission Date: 20260118
  Serious: No
  Sender: BAYER HEALTHCARE PHARMACEUTICALS INC.
  Company Number: US-BAYER-2025A096605

PATIENT
  Age: 48 Year
  Sex: Female

DRUGS (4)
  1. ESTRADIOL [Suspect]
     Active Substance: ESTRADIOL
     Route: 062
  2. PROGESTERONE [Concomitant]
     Active Substance: PROGESTERONE
  3. VITAMIN D2 [Concomitant]
     Active Substance: ERGOCALCIFEROL
  4. JWH-018 [Concomitant]
     Active Substance: JWH-018

REACTIONS (2)
  - Product adhesion issue [None]
  - Application site rash [None]
